FAERS Safety Report 5640037-8 (Version None)
Quarter: 2008Q1

REPORT INFORMATION
  Report Type: 
  Country: None (occurrence: None)
  Receive Date: 20080226
  Receipt Date: 20080226
  Transmission Date: 20080703
  Serious: No
  Sender: FDA-Public Use
  Company Number: None

PATIENT
  Age: 80 Year
  Sex: Male

DRUGS (1)
  1. DOXERCALCIFEROL [Suspect]
     Indication: HYPOCALCAEMIA
     Dosage: 1MCG EVERY DAY PO
     Route: 048
     Dates: start: 20070307, end: 20070808

REACTIONS (2)
  - RASH [None]
  - URTICARIA [None]
